FAERS Safety Report 9898462 (Version 1)
Quarter: 2014Q1

REPORT INFORMATION
  Report Type: Spontaneous
  Country: US (occurrence: US)
  Receive Date: 20140214
  Receipt Date: 20140214
  Transmission Date: 20141002
  Serious: No
  Sender: FDA-Public Use
  Company Number: US-BAYER-2014-023597

PATIENT
  Age: 81 Year
  Sex: Female
  Weight: 82 kg

DRUGS (4)
  1. ALEVE CAPLET [Suspect]
     Indication: PAIN PROPHYLAXIS
     Dosage: 1 DF, BID
     Route: 048
     Dates: start: 20140130
  2. ALEVE CAPLET [Suspect]
     Indication: SCIATICA
  3. OXYBUTIN [Concomitant]
  4. TRAMADOL [Concomitant]

REACTIONS (2)
  - Incorrect drug administration duration [None]
  - Intentional drug misuse [None]
